FAERS Safety Report 6849580-7 (Version None)
Quarter: 2010Q3

REPORT INFORMATION
  Report Type: 
  Country: None (occurrence: None)
  Receive Date: 20100716
  Receipt Date: 20100707
  Transmission Date: 20110219
  Serious: Yes (Hospitalization)
  Sender: FDA-Public Use
  Company Number: JP-ABBOTT-10P-087-0655873-00

PATIENT
  Age: 74 Year
  Sex: Male

DRUGS (9)
  1. LEUPLIN FOR INJECTION 3.75 MG [Suspect]
     Indication: NEOPLASM MALIGNANT
     Route: 058
     Dates: start: 20061129, end: 20071212
  2. NORVASC [Suspect]
     Indication: HYPERTENSION
     Route: 048
     Dates: end: 20080208
  3. DIOVAN [Suspect]
     Indication: HYPERTENSION
     Route: 048
     Dates: end: 20080208
  4. VASOMET [Suspect]
     Indication: HYPERTENSION
     Route: 048
     Dates: end: 20080208
  5. KOLANTYL [Suspect]
     Indication: DUODENAL ULCER
     Route: 048
     Dates: end: 20080208
  6. SELBEX [Suspect]
     Indication: PRODUCT USED FOR UNKNOWN INDICATION
     Route: 048
     Dates: end: 20080208
  7. OMEPRAL [Suspect]
     Indication: REFLUX OESOPHAGITIS
     Route: 048
     Dates: start: 20070901, end: 20080208
  8. CASODEX [Suspect]
     Indication: NEOPLASM MALIGNANT
     Route: 048
     Dates: start: 20070425, end: 20080208
  9. ODYNE [Concomitant]
     Indication: NEOPLASM MALIGNANT
     Route: 048
     Dates: start: 20061129, end: 20070424

REACTIONS (5)
  - ABDOMINAL DISTENSION [None]
  - ALANINE AMINOTRANSFERASE INCREASED [None]
  - ASPARTATE AMINOTRANSFERASE INCREASED [None]
  - HEPATIC FUNCTION ABNORMAL [None]
  - REFLUX OESOPHAGITIS [None]
